FAERS Safety Report 10179371 (Version 1)
Quarter: 2014Q2

REPORT INFORMATION
  Report Type: Spontaneous
  Country: US (occurrence: None)
  Receive Date: 20140515
  Receipt Date: 20140515
  Transmission Date: 20141212
  Serious: Yes (Hospitalization)
  Sender: FDA-Public Use
  Company Number: UTC-045253

PATIENT
  Age: 56 Year
  Sex: Male
  Weight: 90.26 kg

DRUGS (2)
  1. TYVASO(0.6 MILLIGRAM/MILLILITERS, AEROSOL FOR INHALATION)(TREPRESOSTINIL SODIUM) [Suspect]
     Indication: PULMONARY ARTERIAL HYPERTENSION
     Route: 055
     Dates: start: 20110509
  2. REVATIO(SILDENAFIL CITRATE) [Concomitant]

REACTIONS (2)
  - Convulsion [None]
  - Alcohol withdrawal syndrome [None]
